FAERS Safety Report 6782513-0 (Version None)
Quarter: 2010Q2

REPORT INFORMATION
  Report Type: 
  Country: None (occurrence: None)
  Receive Date: 20100616
  Receipt Date: 20100601
  Transmission Date: 20101027
  Serious: Yes (Other)
  Sender: FDA-Public Use
  Company Number: 2010-1537

PATIENT
  Age: 26 Year
  Sex: Female
  Weight: 60 kg

DRUGS (3)
  1. SOMATULINE L.P. 120MG (LANRETOTIDE AUTOGEL) (LANREOTIDE) (LANREOTIDE A [Suspect]
     Indication: INSULINOMA
     Dosage: 120 MG (120 MG, 1 IN 28 D), SUBCUTANEOUS - INJECTION DELAYED, THEN REDUCED TO 60 MG
     Route: 058
     Dates: start: 20100311
  2. LAMICTAL [Concomitant]
  3. MINIDRIL (EUGYNON) [Concomitant]

REACTIONS (5)
  - ABDOMINAL PAIN [None]
  - CYTOLYTIC HEPATITIS [None]
  - HEPATITIS ACUTE [None]
  - HYPOGLYCAEMIA [None]
  - JAUNDICE CHOLESTATIC [None]
